FAERS Safety Report 5239628-8 (Version None)
Quarter: 2007Q1

REPORT INFORMATION
  Report Type: 
  Country: None (occurrence: None)
  Receive Date: 20070216
  Receipt Date: 20070214
  Transmission Date: 20070707
  Serious: Yes (Hospitalization)
  Sender: FDA-Public Use
  Company Number: FR-GLAXOSMITHKLINE-B0457108A

PATIENT
  Age: 76 Year
  Sex: Female

DRUGS (5)
  1. AUGMENTIN '125' [Suspect]
     Indication: BRONCHITIS
     Route: 048
     Dates: start: 20070112, end: 20070115
  2. AMOXICILLIN [Suspect]
     Indication: BRONCHITIS
     Route: 048
     Dates: start: 20070115, end: 20070123
  3. FLECAINIDE ACETATE [Concomitant]
     Indication: VENTRICULAR FIBRILLATION
     Dosage: 50MG TWICE PER DAY
     Route: 048
  4. PREVISCAN [Concomitant]
     Indication: VENTRICULAR FIBRILLATION
     Dosage: 10MG PER DAY
     Route: 048
  5. BISOPROLOL FUMARATE [Concomitant]
     Indication: VENTRICULAR FIBRILLATION
     Dosage: 2.5MG PER DAY
     Route: 048

REACTIONS (5)
  - ABDOMINAL PAIN [None]
  - C-REACTIVE PROTEIN INCREASED [None]
  - DIARRHOEA [None]
  - HAEMATOCHEZIA [None]
  - INTERNATIONAL NORMALISED RATIO INCREASED [None]
